FAERS Safety Report 20790686 (Version 1)
Quarter: 2022Q2

REPORT INFORMATION
  Report Type: Report from Study
  Country: US (occurrence: US)
  Receive Date: 20220505
  Receipt Date: 20220505
  Transmission Date: 20220721
  Serious: Yes (Other)
  Sender: FDA-Public Use
  Company Number: US-ABBVIE-22K-163-4381303-00

PATIENT
  Age: 64 Year
  Sex: Female

DRUGS (3)
  1. SKYRIZI [Suspect]
     Active Substance: RISANKIZUMAB-RZAA
     Indication: Psoriasis
     Route: 058
  2. JANSSEN COVID-19 VACCINE [Concomitant]
     Active Substance: AD26.COV2.S
     Indication: COVID-19 immunisation
     Dosage: 1ST DOSE
     Route: 030
     Dates: start: 20210301, end: 20210301
  3. JANSSEN COVID-19 VACCINE [Concomitant]
     Active Substance: AD26.COV2.S
     Dosage: 1ST DOSE
     Route: 030
     Dates: start: 20211101, end: 20211101

REACTIONS (5)
  - Thyroidectomy [Recovered/Resolved]
  - Melanocytic naevus [Recovering/Resolving]
  - Benign neoplasm of adrenal gland [Unknown]
  - Pituitary-dependent Cushing^s syndrome [Unknown]
  - Pruritus [Unknown]

NARRATIVE: CASE EVENT DATE: 20220401
